FAERS Safety Report 4648481-2 (Version None)
Quarter: 2005Q2

REPORT INFORMATION
  Report Type: 
  Country: None (occurrence: None)
  Receive Date: 20050427
  Receipt Date: 20050411
  Transmission Date: 20051028
  Serious: Yes (Other)
  Sender: FDA-Public Use
  Company Number: GBS050216768

PATIENT
  Age: 47 Year
  Sex: Female
  Weight: 65 kg

DRUGS (2)
  1. PROZAC [Suspect]
     Indication: DEPRESSION
     Dosage: 20 MG DAY
     Dates: start: 20040816, end: 20050203
  2. ZOPICLONE (ZOPICLONE) [Concomitant]

REACTIONS (1)
  - BLOOD PROLACTIN INCREASED [None]
